FAERS Safety Report 8355996-2 (Version None)
Quarter: 2012Q2

REPORT INFORMATION
  Report Type: 
  Country: None (occurrence: None)
  Receive Date: 20120514
  Receipt Date: 20120504
  Transmission Date: 20120825
  Serious: Yes (Hospitalization)
  Sender: FDA-Public Use
  Company Number: FR-JNJFOC-20120509000

PATIENT
  Sex: Female

DRUGS (12)
  1. POLYETHYLENE GLYCOL [Concomitant]
     Route: 065
  2. PROCORALAN [Concomitant]
     Route: 065
  3. RABEPRAZOLE SODIUM [Concomitant]
     Route: 065
  4. LYRICA [Suspect]
     Indication: PRODUCT USED FOR UNKNOWN INDICATION
     Route: 048
     Dates: start: 20110913, end: 20120220
  5. LEXOMIL [Suspect]
     Indication: PRODUCT USED FOR UNKNOWN INDICATION
     Route: 048
  6. NITROGLYCERIN [Concomitant]
     Route: 065
  7. ALDACTONE [Concomitant]
     Route: 065
  8. URBANYL [Suspect]
     Indication: PRODUCT USED FOR UNKNOWN INDICATION
     Route: 048
     Dates: start: 20111108, end: 20120220
  9. LEXOMIL [Suspect]
     Dosage: HALF A TABLET ONCE A DAY
     Route: 048
     Dates: start: 20110101
  10. SULFARLEM [Concomitant]
     Route: 065
  11. DURAGESIC-100 [Suspect]
     Indication: PRODUCT USED FOR UNKNOWN INDICATION
     Route: 062
     Dates: start: 20111108, end: 20120220
  12. LASIX [Concomitant]
     Route: 065

REACTIONS (5)
  - DEPRESSED LEVEL OF CONSCIOUSNESS [None]
  - ACIDOSIS [None]
  - HYPERCAPNIA [None]
  - RESPIRATORY DISTRESS [None]
  - COMA [None]
